FAERS Safety Report 24573081 (Version 5)
Quarter: 2025Q1

REPORT INFORMATION
  Report Type: Report from Study
  Country: US (occurrence: US)
  Receive Date: 20241101
  Receipt Date: 20250108
  Transmission Date: 20250408
  Serious: Yes (Hospitalization, Other)
  Sender: SUNOVION
  Company Number: US-SUMITOMO PHARMA SWITZERLAND GMBH-2024SPA004387

PATIENT

DRUGS (3)
  1. ORGOVYX [Suspect]
     Active Substance: RELUGOLIX
     Indication: Prostate cancer
     Dosage: 360 MG, SINGLE
     Route: 048
     Dates: start: 20241016, end: 20241016
  2. ORGOVYX [Suspect]
     Active Substance: RELUGOLIX
     Dosage: 120 MG, QD
     Route: 048
     Dates: start: 20241017
  3. XTANDI [Concomitant]
     Active Substance: ENZALUTAMIDE
     Route: 065

REACTIONS (10)
  - Pericardial effusion [Unknown]
  - Orthopnoea [Unknown]
  - Dyspnoea [Unknown]
  - Sexual dysfunction [Unknown]
  - Blood creatinine abnormal [Unknown]
  - Feeling hot [Unknown]
  - Diarrhoea [Unknown]
  - Hypertension [Unknown]
  - Fatigue [Unknown]
  - Product dose omission in error [Unknown]
